FAERS Safety Report 20582134 (Version 1)
Quarter: 2022Q1

REPORT INFORMATION
  Report Type: Spontaneous
  Country: US (occurrence: None)
  Receive Date: 20220310
  Receipt Date: 20220310
  Transmission Date: 20220423
  Serious: Yes (Other)
  Sender: FDA-Public Use
  Company Number: None

PATIENT
  Age: 19 Year
  Sex: Male
  Weight: 67.5 kg

DRUGS (1)
  1. NUWIQ [Suspect]
     Active Substance: ANTIHEMOPHILIC FACTOR, HUMAN RECOMBINANT
     Indication: Factor VIII deficiency
     Dosage: OTHER FREQUENCY : QOD;?
     Route: 040
     Dates: start: 20220218, end: 20220310

REACTIONS (1)
  - Rash [None]

NARRATIVE: CASE EVENT DATE: 20220309
